FAERS Safety Report 7394259-9 (Version None)
Quarter: 2011Q2

REPORT INFORMATION
  Report Type: 
  Country: None (occurrence: None)
  Receive Date: 20110405
  Receipt Date: 20110331
  Transmission Date: 20111010
  Serious: Yes (Hospitalization)
  Sender: FDA-Public Use
  Company Number: DE-PFIZER INC-2007051495

PATIENT
  Age: 49 Year
  Sex: Male
  Weight: 82 kg

DRUGS (13)
  1. SUNITINIB MALATE [Suspect]
     Indication: METASTATIC RENAL CELL CARCINOMA
     Dosage: 50 MG, 1X/DAY
     Route: 048
     Dates: start: 20060407, end: 20060907
  2. TRAMAL [Concomitant]
     Route: 048
     Dates: start: 20060601
  3. NOVALGIN [Concomitant]
     Route: 048
     Dates: start: 20060829
  4. CIPROFLOXACIN [Concomitant]
     Route: 048
     Dates: start: 20061030
  5. ZOMETA [Concomitant]
     Route: 042
     Dates: start: 20040101
  6. COAPROVEL [Concomitant]
     Route: 048
  7. NEBIVOLOL HCL [Concomitant]
     Route: 048
  8. VOLTAREN [Concomitant]
     Route: 048
  9. FURORESE [Concomitant]
     Route: 048
     Dates: start: 20060902
  10. MST [Concomitant]
     Route: 048
     Dates: start: 20060902
  11. PASPERTIN [Concomitant]
     Route: 048
     Dates: start: 20060601
  12. REKAWAN [Concomitant]
     Route: 048
     Dates: start: 20060902
  13. VOMACUR [Concomitant]
     Route: 048
     Dates: start: 20060902

REACTIONS (1)
  - IMPAIRED HEALING [None]
